FAERS Safety Report 8556734-0 (Version None)
Quarter: 2012Q3

REPORT INFORMATION
  Report Type: 
  Country: None (occurrence: None)
  Receive Date: 20120801
  Receipt Date: 20120724
  Transmission Date: 20120928
  Serious: Yes (Other)
  Sender: FDA-Public Use
  Company Number: CA-ABBOTT-12P-028-0952645-00

PATIENT
  Sex: Male

DRUGS (2)
  1. HUMIRA [Suspect]
     Indication: CROHN'S DISEASE
     Route: 058
     Dates: start: 20090201, end: 20090701
  2. HUMIRA [Suspect]
     Route: 058
     Dates: start: 20091128

REACTIONS (3)
  - FISTULA [None]
  - CATHETER PLACEMENT [None]
  - ANAL ABSCESS [None]
